FAERS Safety Report 21325339 (Version 2)
Quarter: 2022Q4

REPORT INFORMATION
  Report Type: Spontaneous
  Country: US (occurrence: US)
  Receive Date: 20220912
  Receipt Date: 20221020
  Transmission Date: 20230112
  Serious: No
  Sender: FDA-Public Use
  Company Number: US-SA-SAC20220906001092

PATIENT
  Age: 52 Year
  Sex: Male
  Weight: 84 kg

DRUGS (2)
  1. DUPIXENT [Suspect]
     Active Substance: DUPILUMAB
     Indication: Psoriasis
     Dosage: 300 MG, QOW
     Route: 058
     Dates: start: 202206, end: 20220805
  2. TALTZ [Concomitant]
     Active Substance: IXEKIZUMAB
     Indication: Psoriasis
     Dosage: UNK

REACTIONS (3)
  - Psoriasis [Unknown]
  - Drug ineffective for unapproved indication [Unknown]
  - Product use in unapproved indication [Unknown]

NARRATIVE: CASE EVENT DATE: 20220601
